FAERS Safety Report 9106565 (Version 1)
Quarter: 2013Q1

REPORT INFORMATION
  Report Type: Spontaneous
  Country: US (occurrence: US)
  Receive Date: 20130221
  Receipt Date: 20130221
  Transmission Date: 20140127
  Serious: Yes (Hospitalization, Other)
  Sender: FDA-Public Use
  Company Number: US-ASTRAZENECA-2013SE10722

PATIENT
  Age: 821 Month
  Sex: Female
  Weight: 108 kg

DRUGS (3)
  1. NEXIUM [Suspect]
     Indication: GASTRITIS EROSIVE
     Route: 048
  2. NEXIUM [Suspect]
     Indication: GASTRITIS EROSIVE
     Route: 048
  3. ANTIDEPRESSANT [Concomitant]

REACTIONS (15)
  - Hip fracture [Unknown]
  - Blood pressure increased [Unknown]
  - Eating disorder [Unknown]
  - Pain in extremity [Unknown]
  - Gait disturbance [Unknown]
  - Delusional perception [Unknown]
  - Migraine [Recovering/Resolving]
  - Arthritis [Unknown]
  - Memory impairment [Unknown]
  - Weight decreased [Unknown]
  - Inflammation [Unknown]
  - Headache [Unknown]
  - Abdominal discomfort [Unknown]
  - Intentional drug misuse [Unknown]
  - Intentional drug misuse [Unknown]
